FAERS Safety Report 15466122 (Version 1)
Quarter: 2018Q4

REPORT INFORMATION
  Report Type: Spontaneous
  Country: US (occurrence: US)
  Receive Date: 20181004
  Receipt Date: 20181004
  Transmission Date: 20190204
  Serious: Yes (Death, Other)
  Sender: FDA-Public Use
  Company Number: US-TEVA-2018-US-959871

PATIENT
  Sex: Female

DRUGS (1)
  1. ACTAVIS CLONAZEPAM [Suspect]
     Active Substance: CLONAZEPAM
     Indication: SLEEP DISORDER
     Route: 065
     Dates: start: 2012

REACTIONS (9)
  - Fall [Unknown]
  - Spinal cord injury [Unknown]
  - Multi-organ disorder [Unknown]
  - Gait inability [Unknown]
  - Thrombosis [Unknown]
  - Seizure [Unknown]
  - Yellow skin [Unknown]
  - Cardiac arrest [Fatal]
  - Ataxia [Unknown]

NARRATIVE: CASE EVENT DATE: 201711
